FAERS Safety Report 12509699 (Version 2)
Quarter: 2016Q3

REPORT INFORMATION
  Report Type: Spontaneous
  Country: US (occurrence: US)
  Receive Date: 20160629
  Receipt Date: 20160713
  Transmission Date: 20161109
  Serious: Yes (Hospitalization)
  Sender: FDA-Public Use
  Company Number: US-ACTAVIS-2016-14338

PATIENT
  Age: 70 Year
  Sex: Male

DRUGS (2)
  1. RISPERIDONE (WATSON LABORATORIES) [Suspect]
     Active Substance: RISPERIDONE
     Indication: AGGRESSION
     Dosage: UNK
     Route: 065
  2. HALOPERIDOL (WATSON LABORATORIES) [Suspect]
     Active Substance: HALOPERIDOL
     Indication: AGGRESSION
     Dosage: UNK
     Route: 065

REACTIONS (3)
  - Drug dispensing error [Recovering/Resolving]
  - Catatonia [Recovering/Resolving]
  - Blood creatine phosphokinase increased [Recovering/Resolving]
